FAERS Safety Report 16768796 (Version 3)
Quarter: 2020Q3

REPORT INFORMATION
  Report Type: Spontaneous
  Country: US (occurrence: US)
  Receive Date: 20190903
  Receipt Date: 20200814
  Transmission Date: 20201102
  Serious: Yes (Other)
  Sender: FDA-Public Use
  Company Number: US-SA-2019SA241239

PATIENT

DRUGS (3)
  1. DUPIXENT [Suspect]
     Active Substance: DUPILUMAB
     Indication: DERMATITIS ATOPIC
     Dosage: 300 MG, QOW
     Route: 058
  2. DUPIXENT [Suspect]
     Active Substance: DUPILUMAB
     Indication: PSORIASIS
  3. BETAMETHASONE DIPROPIONATE AUGMENTED [Concomitant]
     Active Substance: BETAMETHASONE DIPROPIONATE
     Dosage: UNK
     Route: 065

REACTIONS (3)
  - Product use in unapproved indication [Unknown]
  - Product use issue [Unknown]
  - Macular degeneration [Unknown]
